FAERS Safety Report 20450430 (Version 1)
Quarter: 2022Q1

REPORT INFORMATION
  Report Type: Spontaneous
  Country: US (occurrence: None)
  Receive Date: 20220209
  Receipt Date: 20220209
  Transmission Date: 20220423
  Serious: Yes (Hospitalization)
  Sender: FDA-Public Use
  Company Number: None

PATIENT
  Sex: Male

DRUGS (4)
  1. XOLAIR [Suspect]
     Active Substance: OMALIZUMAB
  2. BUDESONIDE SUS 0.5MG/2 [Concomitant]
  3. HYDROCHLOROT TAB [Concomitant]
  4. MONTELUKAST SODIUM [Concomitant]

REACTIONS (2)
  - Spinal operation [None]
  - Osteoporosis [None]
